FAERS Safety Report 6104264-8 (Version None)
Quarter: 2009Q1

REPORT INFORMATION
  Report Type: 
  Country: None (occurrence: None)
  Receive Date: 20090227
  Receipt Date: 20090212
  Transmission Date: 20090719
  Serious: Yes (Death)
  Sender: FDA-Public Use
  Company Number: DSJ-2009-01512

PATIENT
  Age: 68 Year
  Sex: Male

DRUGS (7)
  1. OLMESARTAN MEDOXOMIL [Suspect]
     Indication: HYPERTENSION
     Dosage: PER ORAL
     Route: 048
     Dates: start: 20080324, end: 20080529
  2. AMARYL [Concomitant]
  3. ADONA (CARBAZOCHROME SODIUM SULFONATE) (CARBAZOCHROME SODIUM SULFONATE [Concomitant]
  4. METHYLCOBAL (MECOBALAMIN) (MECOBALAMIN) [Concomitant]
  5. ANPLAG (SARPOGRELATE HYDROCHLORIDE) (SARPRGRELATE HYDROCHLORIDE) [Concomitant]
  6. CRAVIT (LEVOFLOXACIN) (LEVOFLOXACIN) [Concomitant]
  7. MINOMYCIN (MINOCYCLINE HYDROCHLORIDE) (MINOCYCLINE HYDROCHLORIDE) [Concomitant]

REACTIONS (2)
  - RENAL FAILURE ACUTE [None]
  - SEPSIS [None]
